FAERS Safety Report 9017910 (Version 1)
Quarter: 2013Q1

REPORT INFORMATION
  Report Type: Spontaneous
  Country: US (occurrence: US)
  Receive Date: 20130118
  Receipt Date: 20130118
  Transmission Date: 20140127
  Serious: No
  Sender: FDA-Public Use
  Company Number: US-BIOGENIDEC-2013BI004151

PATIENT
  Age: 56 Year
  Sex: Male

DRUGS (1)
  1. TYSABRI [Suspect]
     Indication: MULTIPLE SCLEROSIS
     Route: 042
     Dates: start: 20120201

REACTIONS (5)
  - Pain in extremity [Not Recovered/Not Resolved]
  - Foot operation [Recovered/Resolved]
  - Eye pain [Recovered/Resolved]
  - Diplopia [Recovered/Resolved]
  - Memory impairment [Not Recovered/Not Resolved]
